FAERS Safety Report 6794674-8 (Version None)
Quarter: 2010Q2

REPORT INFORMATION
  Report Type: 
  Country: None (occurrence: None)
  Receive Date: 20100625
  Receipt Date: 20100617
  Transmission Date: 20101027
  Serious: Yes (Hospitalization)
  Sender: FDA-Public Use
  Company Number: JP-PFIZER INC-2010071465

PATIENT
  Age: 67 Year
  Sex: Male
  Weight: 41.6 kg

DRUGS (3)
  1. CISPLATIN [Suspect]
     Indication: GASTRIC CANCER
     Dosage: 66 MG, EVERY 4 WEEKS
     Route: 042
     Dates: start: 20100310
  2. SUNITINIB MALATE [Suspect]
     Indication: GASTRIC CANCER
     Dosage: 25 MG, 1X/DAY, (2 WEEKS TREATMENT-ON AND 2 WEEKS TREATMENT-OFF)
     Route: 048
     Dates: start: 20100309
  3. *TS-1 [Suspect]
     Indication: GASTRIC CANCER
     Dosage: 80 MG, 1X/DAY
     Route: 048
     Dates: start: 20100310

REACTIONS (3)
  - FEBRILE NEUTROPENIA [None]
  - HAEMOGLOBIN ABNORMAL [None]
  - WHITE BLOOD CELL COUNT DECREASED [None]
